FAERS Safety Report 8845911 (Version 1)
Quarter: 2012Q4

REPORT INFORMATION
  Report Type: 
  Country: US (occurrence: US)
  Receive Date: 20121017
  Receipt Date: 20121017
  Transmission Date: 20130627
  Serious: Yes (Hospitalization)
  Sender: FDA-Public Use
  Company Number: US-PERRIGO-12US008777

PATIENT
  Age: 75 Year
  Sex: Female
  Weight: 37.37 kg

DRUGS (7)
  1. ACETAMINOPHEN 500MG 917 [Suspect]
     Indication: PAIN
     Dosage: 1000 mg, tid
     Route: 048
     Dates: start: 20120927, end: 20121007
  2. UNSPECIFIED INGREDIENT [Suspect]
     Indication: PAIN
     Dosage: 2 tablets, every 6-8 hours
     Route: 048
     Dates: start: 201202, end: 20121007
  3. CALTRATE WITH VITAMIN D [Concomitant]
     Indication: SUPPLEMENTATION THERAPY
     Dosage: Unknown, Unknown
     Route: 048
     Dates: end: 20121007
  4. BAYER ADVANCED [Concomitant]
     Indication: PAIN
     Dosage: Unknown, Unknown
     Route: 048
     Dates: end: 20121007
  5. OSTEO BI-FLEX [Concomitant]
     Indication: ARTHROPATHY
     Dosage: Unknown, Unknown
     Route: 065
     Dates: end: 20121007
  6. CENTURY MATURE MULTIVITAMIN [Concomitant]
     Indication: SUPPLEMENTATION THERAPY
     Dosage: Unknown, Unknown
     Route: 048
     Dates: end: 20121007
  7. DIPHENHYDRAMINE HCL [Concomitant]
     Indication: HYPERSENSITIVITY
     Dosage: Unknown, Unknown
     Route: 048
     Dates: end: 20121007

REACTIONS (10)
  - Toxicity to various agents [Unknown]
  - Hallucination [Unknown]
  - Pulmonary oedema [Unknown]
  - Hepatic failure [Unknown]
  - Renal failure [Unknown]
  - Dyspnoea [Unknown]
  - Hypopnoea [Recovering/Resolving]
  - Dysarthria [Unknown]
  - Overdose [Unknown]
  - Drug administration error [Unknown]
